FAERS Safety Report 8778485 (Version 1)
Quarter: 2012Q4

REPORT INFORMATION
  Report Type: 
  Country: JP (occurrence: JP)
  Receive Date: 20120912
  Receipt Date: 20120912
  Transmission Date: 20130627
  Serious: Yes (Death)
  Sender: FDA-Public Use
  Company Number: JP-GLAXOSMITHKLINE-B0829455A

PATIENT
  Age: 13 Year
  Sex: Male

DRUGS (5)
  1. LAMICTAL [Suspect]
     Indication: EPILEPSY
     Dosage: 5MG Per day
     Route: 048
     Dates: start: 20120718, end: 20120821
  2. LAMICTAL [Suspect]
     Indication: EPILEPSY
     Dosage: 10MG Per day
     Route: 048
     Dates: start: 20120822, end: 20120907
  3. SODIUM VALPROATE [Concomitant]
     Indication: EPILEPSY
     Route: 048
     Dates: end: 20120907
  4. CARBAMAZEPINE [Concomitant]
     Indication: EPILEPSY
     Route: 048
     Dates: end: 20120907
  5. PHENYTOIN [Concomitant]
     Indication: EPILEPSY
     Route: 065
     Dates: end: 20120907

REACTIONS (3)
  - Death [Fatal]
  - Vomiting [Unknown]
  - Condition aggravated [Unknown]
